FAERS Safety Report 15130926 (Version 1)
Quarter: 2018Q3

REPORT INFORMATION
  Report Type: Spontaneous
  Country: US (occurrence: US)
  Receive Date: 20180615
  Receipt Date: 20180615
  Transmission Date: 20181010
  Serious: Yes (Hospitalization)
  Sender: FDA-Public Use
  Company Number: None

PATIENT
  Age: 68 Year
  Sex: Male
  Weight: 57.15 kg

DRUGS (9)
  1. COENZYME Q10 [Concomitant]
     Active Substance: UBIDECARENONE
  2. LOSARTAN. [Concomitant]
     Active Substance: LOSARTAN
  3. HUMALOG KWIKPEN [Suspect]
     Active Substance: INSULIN LISPRO
     Indication: TYPE 2 DIABETES MELLITUS
     Dosage: 12 UNIT DAILY SUBCUTANEOUS?
     Route: 058
  4. GLYBURIDE. [Concomitant]
     Active Substance: GLYBURIDE
  5. AMLODIPINE [Concomitant]
     Active Substance: AMLODIPINE BESYLATE
  6. IRON [Concomitant]
     Active Substance: IRON
  7. METFORMIN [Concomitant]
     Active Substance: METFORMIN HYDROCHLORIDE
  8. VITAMIN B12 [Concomitant]
     Active Substance: CYANOCOBALAMIN
  9. ASPIRIN 81MG [Concomitant]
     Active Substance: ASPIRIN

REACTIONS (7)
  - Incorrect dose administered by device [None]
  - Device difficult to use [None]
  - Head titubation [None]
  - Tremor [None]
  - Blood glucose decreased [None]
  - Device issue [None]
  - Seizure [None]

NARRATIVE: CASE EVENT DATE: 20180602
